FAERS Safety Report 9516199 (Version 2)
Quarter: 2013Q4

REPORT INFORMATION
  Report Type: Spontaneous
  Country: US (occurrence: US)
  Receive Date: 20130911
  Receipt Date: 20131022
  Transmission Date: 20140711
  Serious: Yes (Hospitalization, Other)
  Sender: FDA-Public Use
  Company Number: US-VERTEX PHARMACEUTICALS INC-2013-009376

PATIENT
  Sex: Female

DRUGS (17)
  1. INCIVEK [Suspect]
     Indication: HEPATITIS C
     Dosage: UNK
     Dates: start: 20130205, end: 20130430
  2. PEGINTERFERON [Suspect]
     Indication: HEPATITIS C
     Dosage: UNK
     Dates: start: 20130205
  3. RIBAVIRIN [Suspect]
     Indication: HEPATITIS C
     Dosage: UNK
     Dates: start: 20130205
  4. ALLEGRA [Concomitant]
     Dosage: 180 MG, QD
  5. AMBIEN [Concomitant]
     Dosage: 10 MG, QD
  6. ANUSOL HC [Concomitant]
     Dosage: 2.5 %, UNK
  7. BACTROBAN [Concomitant]
     Dosage: 2 %, BID
     Route: 061
  8. CYMBALTA [Concomitant]
     Dosage: 30 MG, CPEP
  9. HYDROXYZINE HCL [Concomitant]
     Dosage: 25 MG, TID
  10. KETOCONAZOLE [Concomitant]
     Dosage: 2 %, BID
  11. MELOXICAM [Concomitant]
     Dosage: 7.5 MG, UNK
  12. NEUPOGEN [Concomitant]
     Dosage: 480 MCG/0/8ML
  13. PERCOCET [Concomitant]
     Dosage: 10-325 MG
  14. PROMETHAZINE HCL [Concomitant]
     Dosage: 25 MG, QOD
  15. PROTONIX [Concomitant]
     Dosage: 40 MG, QD
  16. TOPIRAMATE [Concomitant]
     Dosage: 50 MG, UNK
  17. TRAMADOL HCL [Concomitant]
     Dosage: 50 MG, TID

REACTIONS (8)
  - Gastrointestinal disorder [Unknown]
  - Gastritis [Unknown]
  - Abdominal pain upper [Unknown]
  - Gastrooesophageal reflux disease [Unknown]
  - Nausea [Unknown]
  - Vomiting [Unknown]
  - Neutropenia [Unknown]
  - Dermatitis [Recovered/Resolved]
